FAERS Safety Report 8525859-8 (Version None)
Quarter: 2012Q3

REPORT INFORMATION
  Report Type: 
  Country: None (occurrence: None)
  Receive Date: 20120720
  Receipt Date: 20120712
  Transmission Date: 20120928
  Serious: Yes (Hospitalization, Other)
  Sender: FDA-Public Use
  Company Number: US-ELI_LILLY_AND_COMPANY-US201010002647

PATIENT
  Sex: Female

DRUGS (22)
  1. PROZAC [Concomitant]
     Indication: DEPRESSION
  2. TRAZODONE HYDROCHLORIDE [Concomitant]
     Dosage: 300 MG, UNK
  3. NORTRIPTYLINE HCL [Concomitant]
  4. PERI-COLACE [Concomitant]
  5. EXCEDRIN (MIGRAINE) [Concomitant]
     Indication: HEADACHE
     Dosage: UNK, PRN
  6. TRAZODONE HYDROCHLORIDE [Concomitant]
     Dosage: 100 MG, UNK
  7. OMEPRAZOLE [Concomitant]
     Dosage: 20 MG, BID
  8. METOPROLOL TARTRATE [Concomitant]
     Dosage: 12.5 MG, UNK
  9. VITAMIN D [Concomitant]
  10. FORTEO [Suspect]
     Dosage: 20 UG, QD
     Dates: end: 20120508
  11. FORTEO [Suspect]
     Indication: OSTEOPOROSIS
     Dosage: 20 UG, QD
     Dates: start: 20100921, end: 20101006
  12. FORTEO [Suspect]
     Dosage: 20 UG, QD
     Route: 065
     Dates: end: 20120508
  13. VITAMIN B NOS [Concomitant]
     Indication: INNER EAR DISORDER
  14. LEVOCETIRIZINE DIHYDROCHLORIDE [Concomitant]
     Dosage: 50 MG, QD
  15. METAMUCIL-2 [Concomitant]
  16. FORTEO [Suspect]
     Dosage: 20 UG, QD
     Dates: end: 20120508
  17. METOPROLOL TARTRATE [Concomitant]
     Dosage: 25 MG, UNK
  18. METOPROLOL TARTRATE [Concomitant]
     Dosage: 37.5 MG, QD
  19. LEVOTHYROXINE SODIUM [Concomitant]
     Dosage: 50 UG, QD
  20. METOPROLOL TARTRATE [Concomitant]
     Dosage: 50 MG, UNK
  21. CALCIUM [Concomitant]
  22. FIORICET [Concomitant]
     Indication: HEADACHE
     Dosage: UNK, PRN

REACTIONS (17)
  - HERPES ZOSTER [None]
  - INJECTION SITE PAIN [None]
  - EAR INFECTION [None]
  - CHEST PAIN [None]
  - VITAMIN D DECREASED [None]
  - INJECTION SITE ERYTHEMA [None]
  - HUNGER [None]
  - CARDIAC DISORDER [None]
  - ARTHROPOD BITE [None]
  - CONSTIPATION [None]
  - BLOOD CALCIUM INCREASED [None]
  - DYSPEPSIA [None]
  - PRURITUS [None]
  - HEART RATE DECREASED [None]
  - ERYTHEMA [None]
  - VOMITING [None]
  - NAUSEA [None]
